FAERS Safety Report 14721283 (Version 2)
Quarter: 2019Q1

REPORT INFORMATION
  Report Type: Report from Study
  Country: JP (occurrence: JP)
  Receive Date: 20180405
  Receipt Date: 20190222
  Transmission Date: 20190417
  Serious: Yes (Other)
  Sender: FDA-Public Use
  Company Number: JP-TEVA-2018-JP-863933

PATIENT
  Age: 38 Year
  Sex: Female

DRUGS (2)
  1. PREDONINE [Concomitant]
     Active Substance: PREDNISOLONE
     Dates: start: 20180305, end: 20180329
  2. GLATIRAMER ACETATE. [Suspect]
     Active Substance: GLATIRAMER ACETATE
     Indication: RELAPSING-REMITTING MULTIPLE SCLEROSIS
     Dosage: 20 MILLIGRAM/MILLILITERS DAILY;
     Route: 058
     Dates: start: 20170410

REACTIONS (7)
  - Injection site swelling [Recovering/Resolving]
  - Injection site induration [Not Recovered/Not Resolved]
  - Injection site pain [Recovering/Resolving]
  - Injection site induration [Recovering/Resolving]
  - Injection site swelling [Not Recovered/Not Resolved]
  - Hypoaesthesia [Recovering/Resolving]
  - Injection site erythema [Recovering/Resolving]

NARRATIVE: CASE EVENT DATE: 20170412
